FAERS Safety Report 16058810 (Version 2)
Quarter: 2019Q4

REPORT INFORMATION
  Report Type: Spontaneous
  Country: US (occurrence: US)
  Receive Date: 20190311
  Receipt Date: 20191001
  Transmission Date: 20200122
  Serious: Yes (Hospitalization)
  Sender: FDA-Public Use
  Company Number: US-009507513-1902USA011483

PATIENT
  Age: 63 Year
  Sex: Male

DRUGS (2)
  1. KEYTRUDA [Suspect]
     Active Substance: PEMBROLIZUMAB
     Indication: RENAL CELL CARCINOMA
     Dosage: 100 MILLIGRAM EVERY 3 WEEKS
     Dates: start: 20170425
  2. AXITINIB [Concomitant]
     Active Substance: AXITINIB

REACTIONS (3)
  - Product use in unapproved indication [Unknown]
  - Chest pain [Unknown]
  - Therapeutic product effective for unapproved indication [Recovered/Resolved]

NARRATIVE: CASE EVENT DATE: 20170425
